FAERS Safety Report 5586189-X (Version None)
Quarter: 2008Q1

REPORT INFORMATION
  Report Type: 
  Country: None (occurrence: None)
  Receive Date: 20080107
  Receipt Date: 20071231
  Transmission Date: 20080703
  Serious: Yes (Other)
  Sender: FDA-Public Use
  Company Number: 2008000042

PATIENT
  Age: 2 Year
  Sex: Female

DRUGS (1)
  1. SUDAFED 12 HOUR [Suspect]
     Dosage: 2 CAPLETS ONCE, ORAL
     Route: 048

REACTIONS (1)
  - NO ADVERSE EVENT [None]
